FAERS Safety Report 8916218 (Version 1)
Quarter: 2012Q4

REPORT INFORMATION
  Report Type: Report from Study
  Country: DE (occurrence: DE)
  Receive Date: 20121120
  Receipt Date: 20121120
  Transmission Date: 20130627
  Serious: Yes (Hospitalization)
  Sender: FDA-Public Use
  Company Number: DE-GLAXOSMITHKLINE-B0843722A

PATIENT
  Age: 43 Year
  Sex: Female
  Weight: 54 kg

DRUGS (10)
  1. LAPATINIB [Suspect]
     Indication: BREAST CANCER
     Dosage: 750MG Per day
     Route: 048
     Dates: start: 20121106
  2. TRASTUZUMAB [Suspect]
     Indication: BREAST NEOPLASM
     Dosage: 432.8MG Every 3 weeks
     Route: 042
     Dates: start: 20121105
  3. PACLITAXEL [Suspect]
     Indication: BREAST NEOPLASM
     Dosage: 128.8MG Weekly
     Route: 042
     Dates: start: 20121106
  4. MYOCET [Suspect]
     Indication: BREAST NEOPLASM
     Dosage: 32.2MG Weekly
     Route: 042
     Dates: start: 20121106
  5. CARBOPLATIN [Suspect]
     Indication: BREAST NEOPLASM
     Dosage: 258.3MG Weekly
     Route: 042
     Dates: start: 20121106
  6. NOVALGIN [Concomitant]
     Dosage: 500MG per day
     Dates: start: 20121105, end: 20121105
  7. IMODIUM [Concomitant]
     Dates: start: 20121113, end: 20121113
  8. ZOFRAN [Concomitant]
     Dates: start: 20121113, end: 20121113
  9. TAVEGIL [Concomitant]
     Route: 042
     Dates: start: 20121113, end: 20121113
  10. RANITIC [Concomitant]
     Dates: start: 20121113, end: 20121113

REACTIONS (2)
  - Pyrexia [Recovered/Resolved]
  - Pyrexia [Recovered/Resolved]
